FAERS Safety Report 7914937-X (Version None)
Quarter: 2011Q4

REPORT INFORMATION
  Report Type: 
  Country: None (occurrence: None)
  Receive Date: 20111115
  Receipt Date: 20111109
  Transmission Date: 20120403
  Serious: Yes (Hospitalization)
  Sender: FDA-Public Use
  Company Number: DE-ROCHE-1011308

PATIENT
  Sex: Female

DRUGS (2)
  1. PEGASYS [Suspect]
     Indication: HEPATITIS
     Route: 065
     Dates: start: 20111028
  2. COPEGUS [Suspect]
     Indication: HEPATITIS
     Dosage: UNKNOWN
     Route: 065
     Dates: start: 20111028

REACTIONS (6)
  - URTICARIA [None]
  - ABDOMINAL PAIN UPPER [None]
  - HYPERSENSITIVITY [None]
  - DRY SKIN [None]
  - DIZZINESS [None]
  - SYNCOPE [None]
